FAERS Safety Report 7328001-4 (Version None)
Quarter: 2011Q1

REPORT INFORMATION
  Report Type: 
  Country: None (occurrence: None)
  Receive Date: 20110223
  Receipt Date: 20110210
  Transmission Date: 20110831
  Serious: Yes (Death)
  Sender: FDA-Public Use
  Company Number: CRC-11-030

PATIENT
  Sex: Male

DRUGS (8)
  1. ACETYLCYSTEINE [Suspect]
  2. SKELETAL MUSCLE RELAXANT [Suspect]
  3. LORCET-HD [Suspect]
  4. CODEINE [Suspect]
  5. MARIJUANA [Suspect]
  6. METHAMPHETAMINE [Suspect]
  7. EQUAGESIC [Suspect]
  8. CARISOPRODOL [Suspect]

REACTIONS (10)
  - HYPOTENSION [None]
  - ACUTE MYOCARDIAL INFARCTION [None]
  - RASH [None]
  - HEPATITIS B [None]
  - ANGIOEDEMA [None]
  - BRADYCARDIA [None]
  - DRUG HYPERSENSITIVITY [None]
  - HEPATITIS C [None]
  - MULTI-ORGAN FAILURE [None]
  - TOXICITY TO VARIOUS AGENTS [None]
